FAERS Safety Report 15610788 (Version 1)
Quarter: 2018Q4

REPORT INFORMATION
  Report Type: Spontaneous
  Country: US (occurrence: US)
  Receive Date: 20181113
  Receipt Date: 20181113
  Transmission Date: 20190205
  Serious: No
  Sender: FDA-Public Use
  Company Number: US-ROCHE-2067355

PATIENT
  Age: 75 Year
  Sex: Female
  Weight: 49.94 kg

DRUGS (3)
  1. AVASTIN [Suspect]
     Active Substance: BEVACIZUMAB
     Indication: NEOVASCULAR AGE-RELATED MACULAR DEGENERATION
     Dosage: ONGOING:NO
     Route: 065
     Dates: start: 20171226
  2. LUCENTIS [Suspect]
     Active Substance: RANIBIZUMAB
     Indication: NEOVASCULAR AGE-RELATED MACULAR DEGENERATION
     Dosage: ONGOING:UNKNOWN
     Route: 065
     Dates: start: 201503
  3. EYLEA [Concomitant]
     Active Substance: AFLIBERCEPT
     Indication: NEOVASCULAR AGE-RELATED MACULAR DEGENERATION
     Dosage: ONGOING:YES
     Route: 065

REACTIONS (10)
  - Headache [Recovered/Resolved]
  - Vitreous floaters [Not Recovered/Not Resolved]
  - Off label use [Unknown]
  - Crying [Recovered/Resolved]
  - Headache [Unknown]
  - Metamorphopsia [Unknown]
  - Rhinorrhoea [Recovered/Resolved]
  - Photopsia [Not Recovered/Not Resolved]
  - Intentional product use issue [Unknown]
  - Pain [Recovered/Resolved]

NARRATIVE: CASE EVENT DATE: 20171226
